FAERS Safety Report 6915237-7 (Version None)
Quarter: 2010Q3

REPORT INFORMATION
  Report Type: 
  Country: None (occurrence: None)
  Receive Date: 20100806
  Receipt Date: 20100806
  Transmission Date: 20110219
  Serious: Yes (Other)
  Sender: FDA-Public Use
  Company Number: None

PATIENT
  Age: 9 Year
  Sex: Male
  Weight: 30.391 kg

DRUGS (1)
  1. CANTHARDIN UNKNOWN UNKNOWN [Suspect]
     Indication: SKIN PAPILLOMA
     Dosage: 1 TIME
     Dates: start: 20100520, end: 20100520

REACTIONS (7)
  - APPLICATION SITE PAIN [None]
  - BLISTER [None]
  - CONDITION AGGRAVATED [None]
  - CRYING [None]
  - EDUCATIONAL PROBLEM [None]
  - PAIN [None]
  - SKIN PAPILLOMA [None]
